FAERS Safety Report 6003127-6 (Version None)
Quarter: 2008Q4

REPORT INFORMATION
  Report Type: 
  Country: None (occurrence: None)
  Receive Date: 20081216
  Receipt Date: 20081205
  Transmission Date: 20090506
  Serious: Yes (Other)
  Sender: FDA-Public Use
  Company Number: GB-TEVA-169435ISR

PATIENT
  Age: 8 Year
  Sex: Male

DRUGS (1)
  1. PREDNISOLONE [Suspect]
     Indication: DUCHENNE MUSCULAR DYSTROPHY

REACTIONS (5)
  - ABDOMINAL PAIN [None]
  - ABNORMAL BEHAVIOUR [None]
  - COSTOVERTEBRAL ANGLE TENDERNESS [None]
  - MYOGLOBINURIA [None]
  - RHABDOMYOLYSIS [None]
